FAERS Safety Report 22729840 (Version 2)
Quarter: 2023Q4

REPORT INFORMATION
  Report Type: Spontaneous
  Country: US (occurrence: US)
  Receive Date: 20230720
  Receipt Date: 20231002
  Transmission Date: 20240110
  Serious: Yes (Hospitalization)
  Sender: FDA-Public Use
  Company Number: US-ELI_LILLY_AND_COMPANY-US202307007425

PATIENT
  Sex: Female
  Weight: 103.4 kg

DRUGS (1)
  1. MOUNJARO [Suspect]
     Active Substance: TIRZEPATIDE
     Indication: Type 2 diabetes mellitus
     Dosage: 10 MG, WEEKLY (1/W)
     Route: 058
     Dates: start: 20230310

REACTIONS (4)
  - Nephrolithiasis [Unknown]
  - Lip discolouration [Unknown]
  - Electrolyte imbalance [Unknown]
  - Pollakiuria [Unknown]
